FAERS Safety Report 22080001 (Version 1)
Quarter: 2023Q1

REPORT INFORMATION
  Report Type: Spontaneous
  Country: US (occurrence: None)
  Receive Date: 20230308
  Receipt Date: 20230308
  Transmission Date: 20230417
  Serious: No
  Sender: FDA-Public Use
  Company Number: None

PATIENT
  Age: 62 Year
  Sex: Female
  Weight: 66.86 kg

DRUGS (16)
  1. CAPECITABINE [Suspect]
     Active Substance: CAPECITABINE
     Indication: Breast cancer female
     Dosage: FREQUENCY : TWICE A DAY;?
     Route: 048
  2. ALLOPURINOL [Concomitant]
     Active Substance: ALLOPURINOL
  3. ANASTROZOLE [Concomitant]
  4. CALCIUM-MAGNESIUM-ZINC [Concomitant]
  5. DRISTAN SPRAY [Concomitant]
  6. INDOMETHACIN [Concomitant]
  7. LEVOCETIRIZINE [Concomitant]
     Active Substance: LEVOCETIRIZINE
  8. LORATADINE [Concomitant]
  9. MELATONIN [Concomitant]
     Active Substance: MELATONIN
  10. OXYMETAZOLINE [Concomitant]
  11. POTASSIUM [Concomitant]
  12. PROLIA [Concomitant]
  13. SYNTHROID [Concomitant]
  14. TRIAMCINOLONE [Concomitant]
  15. VITAMIN B12 [Concomitant]
     Active Substance: CYANOCOBALAMIN
  16. XGEVA [Concomitant]

REACTIONS (1)
  - Disease progression [None]
